FAERS Safety Report 7220108-5 (Version None)
Quarter: 2011Q1

REPORT INFORMATION
  Report Type: 
  Country: None (occurrence: None)
  Receive Date: 20110111
  Receipt Date: 20101231
  Transmission Date: 20110831
  Serious: Yes (Other)
  Sender: FDA-Public Use
  Company Number: B0692598A

PATIENT
  Age: 75 Year
  Sex: Female

DRUGS (8)
  1. FLUCONAZOLE [Suspect]
     Indication: KERATITIS FUNGAL
     Route: 061
  2. GENTAMICIN [Suspect]
     Route: 061
  3. CEFUROXIME [Suspect]
     Indication: KERATITIS FUNGAL
  4. DEXAMETHASONE [Suspect]
     Indication: PROPHYLAXIS
     Route: 061
  5. OFLOXACIN [Suspect]
     Indication: KERATITIS FUNGAL
     Route: 065
  6. VORICONAZOLE [Suspect]
     Indication: KERATITIS FUNGAL
  7. ITRACONAZOLE [Suspect]
     Indication: KERATITIS FUNGAL
     Route: 065
  8. AMPHOTERICIN B [Suspect]
     Indication: PROPHYLAXIS

REACTIONS (1)
  - KERATITIS FUNGAL [None]
